FAERS Safety Report 8198886-0 (Version None)
Quarter: 2012Q1

REPORT INFORMATION
  Report Type: 
  Country: None (occurrence: None)
  Receive Date: 20120309
  Receipt Date: 20120221
  Transmission Date: 20120608
  Serious: No
  Sender: FDA-Public Use
  Company Number: US-AMGEN-USASP2011044777

PATIENT
  Age: 75 Year
  Sex: Female
  Weight: 45 kg

DRUGS (14)
  1. VITAMIN B12 W/VITAMIN B6/FOLIC ACID [Concomitant]
  2. CALCIUM WITH VITAMIN D [Concomitant]
  3. VITAMIN D [Concomitant]
  4. STOOL SOFTENER [Concomitant]
  5. PROLIA [Suspect]
     Indication: OSTEOPENIA
     Dosage: 60 MG, Q6MO
     Dates: start: 20110328
  6. MULTI-VITAMIN [Concomitant]
  7. GLUCOSAMINE SULFATE [Concomitant]
  8. DHA [Concomitant]
  9. PROLIA [Suspect]
     Indication: OSTEOPOROSIS POSTMENOPAUSAL
  10. LUTEIN [Concomitant]
  11. VITAMIN B-12 [Concomitant]
  12. LOVAZA [Concomitant]
  13. COLACE [Concomitant]
     Dosage: 1 IU, QD
  14. ASPIRIN [Concomitant]
     Dosage: 1 MG, QD

REACTIONS (9)
  - SKIN ATROPHY [None]
  - BACK PAIN [None]
  - OSTEOARTHRITIS [None]
  - RASH PRURITIC [None]
  - MOBILITY DECREASED [None]
  - DERMATITIS CONTACT [None]
  - RASH ERYTHEMATOUS [None]
  - SCOLIOSIS [None]
  - RASH PAPULAR [None]
